FAERS Safety Report 16764351 (Version 2)
Quarter: 2019Q3

REPORT INFORMATION
  Report Type: Spontaneous
  Country: GB (occurrence: GB)
  Receive Date: 20190902
  Receipt Date: 20190925
  Transmission Date: 20191005
  Serious: Yes (Congenital Anomaly, Other)
  Sender: FDA-Public Use
  Company Number: GB-GLAXOSMITHKLINE-B0728415A

PATIENT
  Sex: Male

DRUGS (3)
  1. RELENZA [Suspect]
     Active Substance: ZANAMIVIR
     Indication: INFLUENZA
     Route: 064
     Dates: start: 20101221, end: 20101226
  2. FOLIC ACID. [Concomitant]
     Active Substance: FOLIC ACID
     Route: 064
  3. FLUARIX NOS [Concomitant]
     Active Substance: INFLUENZA VIRUS VACCINE
     Route: 064
     Dates: start: 20110113, end: 20110113

REACTIONS (1)
  - Deafness congenital [Not Recovered/Not Resolved]

NARRATIVE: CASE EVENT DATE: 20110317
